FAERS Safety Report 4701098-3 (Version None)
Quarter: 2005Q2

REPORT INFORMATION
  Report Type: 
  Country: None (occurrence: None)
  Receive Date: 20050624
  Receipt Date: 20050613
  Transmission Date: 20051028
  Serious: Yes (Death)
  Sender: FDA-Public Use
  Company Number: RS005238-J

PATIENT
  Age: 95 Year
  Sex: Female
  Weight: 35 kg

DRUGS (8)
  1. RABEPRAZOLE SODIUM [Suspect]
     Indication: REFLUX OESOPHAGITIS
     Dosage: 10 MG, 1 IN 1 D, ORAL
     Route: 048
     Dates: start: 20050422, end: 20050523
  2. ALLOPURINOL [Suspect]
     Indication: HYPERURICAEMIA
     Dosage: 200 MG, 1 IN 1 D, ORAL
     Route: 048
     Dates: start: 20050422, end: 20050523
  3. ALDACTONE [Concomitant]
  4. LASIX [Concomitant]
  5. PURSENNID (SENNA LEAF) [Concomitant]
  6. THYRADIN (THYROID) [Concomitant]
  7. ISOSORBIDE MONONITRATE [Concomitant]
  8. ISOSORBIDE DINITRATE [Concomitant]

REACTIONS (6)
  - DISSEMINATED INTRAVASCULAR COAGULATION [None]
  - GRANULOCYTE COUNT DECREASED [None]
  - PNEUMONIA [None]
  - SEPSIS [None]
  - THERAPY NON-RESPONDER [None]
  - WHITE BLOOD CELL COUNT DECREASED [None]
